FAERS Safety Report 18192312 (Version 1)
Quarter: 2020Q3

REPORT INFORMATION
  Report Type: Report from Study
  Country: US (occurrence: US)
  Receive Date: 20200825
  Receipt Date: 20200825
  Transmission Date: 20201103
  Serious: Yes (Hospitalization, Other)
  Sender: FDA-Public Use
  Company Number: US-GILEAD-2020-0491782

PATIENT
  Age: 17 Year
  Sex: Male

DRUGS (3)
  1. AZTREONAM LYSINE [Suspect]
     Active Substance: AZTREONAM LYSINE
     Indication: CYSTIC FIBROSIS
     Dosage: TID, 28 DAYS ON, 28 DAYS OFF
     Route: 055
  2. TRIKAFTA [Concomitant]
     Active Substance: ELEXACAFTOR\IVACAFTOR\TEZACAFTOR
  3. AZTREONAM LYSINE [Suspect]
     Active Substance: AZTREONAM LYSINE
     Indication: PSEUDOMONAS INFECTION

REACTIONS (4)
  - Cystic fibrosis respiratory infection suppression [Unknown]
  - Pulmonary function test decreased [Recovered/Resolved]
  - Dyspnoea [Recovered/Resolved]
  - Cystic fibrosis [Unknown]

NARRATIVE: CASE EVENT DATE: 202007
